FAERS Safety Report 6912422-5 (Version None)
Quarter: 2010Q3

REPORT INFORMATION
  Report Type: 
  Country: None (occurrence: None)
  Receive Date: 20100806
  Receipt Date: 20080404
  Transmission Date: 20110219
  Serious: No
  Sender: FDA-Public Use
  Company Number: US-PFIZER INC-2008030519

PATIENT
  Age: 31 Year
  Sex: Female

DRUGS (8)
  1. VFEND [Suspect]
     Indication: ANTIFUNGAL PROPHYLAXIS
     Dates: start: 20080301
  2. VALTREX [Suspect]
     Dates: start: 20080301
  3. VALTREX [Suspect]
  4. LEXAPRO [Concomitant]
  5. NEXIUM [Concomitant]
  6. PROTONIX [Concomitant]
  7. MARINOL [Concomitant]
  8. ALL OTHER THERAPEUTIC PRODUCTS [Concomitant]

REACTIONS (1)
  - EXFOLIATIVE RASH [None]
